FAERS Safety Report 5694784-2 (Version None)
Quarter: 2008Q2

REPORT INFORMATION
  Report Type: 
  Country: None (occurrence: None)
  Receive Date: 20080404
  Receipt Date: 20080325
  Transmission Date: 20081010
  Serious: Yes (Other)
  Sender: FDA-Public Use
  Company Number: IT-ABBOTT-08P-083-0444172-00

PATIENT

DRUGS (1)
  1. WARFARIN SODIUM [Suspect]
     Indication: DRUG EXPOSURE DURING PREGNANCY
     Route: 064

REACTIONS (5)
  - CEREBRAL ATROPHY [None]
  - CEREBRAL VENTRICLE DILATATION [None]
  - DRUG EXPOSURE DURING PREGNANCY [None]
  - PORENCEPHALY [None]
  - PREMATURE BABY [None]
